FAERS Safety Report 12124057 (Version 2)
Quarter: 2016Q1

REPORT INFORMATION
  Report Type: Spontaneous
  Country: IT (occurrence: IT)
  Receive Date: 20160228
  Receipt Date: 20160323
  Transmission Date: 20160526
  Serious: Yes (Other)
  Sender: FDA-Public Use
  Company Number: IT-TEVA-637288ACC

PATIENT
  Age: 59 Year
  Sex: Female
  Weight: 71 kg

DRUGS (2)
  1. CIPROFLOXACINA RATIOPHARM - RATIOPHARM GMBH [Suspect]
     Active Substance: CIPROFLOXACIN
     Indication: BRONCHITIS
     Dosage: 500 MILLIGRAM DAILY; 500 MG DAILY
     Route: 048
     Dates: start: 20160211, end: 20160215
  2. SONGAR - 0,25 MG CAPSULE RIGIDE [Interacting]
     Active Substance: TRIAZOLAM
     Indication: INSOMNIA
     Dosage: 125 MG AS NECESSARY
     Dates: start: 20160211, end: 20160214

REACTIONS (6)
  - Dizziness [Recovered/Resolved]
  - Myalgia [Recovered/Resolved]
  - Aggression [Recovered/Resolved]
  - Crying [Recovered/Resolved]
  - Discomfort [Recovered/Resolved]
  - Drug interaction [Recovered/Resolved]

NARRATIVE: CASE EVENT DATE: 20160215
